FAERS Safety Report 7629636-1 (Version None)
Quarter: 2011Q3

REPORT INFORMATION
  Report Type: 
  Country: None (occurrence: None)
  Receive Date: 20110722
  Receipt Date: 20110712
  Transmission Date: 20111222
  Serious: Yes (Hospitalization)
  Sender: FDA-Public Use
  Company Number: US-ROCHE-782276

PATIENT
  Sex: Male
  Weight: 50 kg

DRUGS (11)
  1. ATIVAN [Concomitant]
     Route: 048
  2. LORTAB [Concomitant]
     Route: 048
  3. BEVACIZUMAB [Suspect]
     Indication: NON-SMALL CELL LUNG CANCER
     Route: 042
     Dates: start: 20090625
  4. DOCETAXEL [Suspect]
     Indication: NON-SMALL CELL LUNG CANCER
     Route: 042
     Dates: start: 20090625
  5. LEVOXYL [Concomitant]
     Route: 048
  6. LOTREL [Concomitant]
     Dosage: 5/10 MG DAILY
     Route: 048
  7. DECADRON [Concomitant]
     Route: 048
  8. ZOFRAN [Concomitant]
     Route: 048
     Dates: start: 20090625
  9. DOCETAXEL [Suspect]
     Dosage: DOSE REDUCED BY 25%
     Route: 042
  10. CARBOPLATIN [Suspect]
     Indication: NON-SMALL CELL LUNG CANCER
     Dosage: 6 AUC
     Route: 042
     Dates: start: 20090625
  11. ALBUTEROL SULFATE AUTOHALER [Concomitant]
     Route: 055

REACTIONS (4)
  - NAUSEA [None]
  - DIARRHOEA [None]
  - ABDOMINAL PAIN [None]
  - SMALL INTESTINAL OBSTRUCTION [None]
